FAERS Safety Report 9913391 (Version 2)
Quarter: 2014Q1

REPORT INFORMATION
  Report Type: Report from Study
  Country: DE (occurrence: DE)
  Receive Date: 20140220
  Receipt Date: 20140318
  Transmission Date: 20141002
  Serious: Yes (Hospitalization)
  Sender: FDA-Public Use
  Company Number: DE-JNJFOC-20140209678

PATIENT
  Age: 63 Year
  Sex: Male
  Weight: 70 kg

DRUGS (6)
  1. PALEXIA RETARD [Suspect]
     Indication: SCIATICA
     Route: 048
     Dates: start: 20130503, end: 20130620
  2. PALEXIA RETARD [Suspect]
     Indication: SCIATICA
     Route: 048
     Dates: start: 20130429, end: 20130502
  3. TILIDINE/NALOXONE [Concomitant]
     Indication: SCIATICA
     Dosage: 2X1 UP TO 2X3
     Route: 065
  4. PROCAINE HYDROCHLORIDE [Concomitant]
     Indication: SCIATICA
     Route: 065
  5. NOVAMINSULFON [Concomitant]
     Indication: SCIATICA
     Route: 065
  6. DEXAMETHASON [Concomitant]
     Indication: PRODUCT USED FOR UNKNOWN INDICATION
     Route: 065

REACTIONS (2)
  - Pain [Unknown]
  - Malignant neoplasm progression [Unknown]
